FAERS Safety Report 7929746-5 (Version None)
Quarter: 2011Q4

REPORT INFORMATION
  Report Type: 
  Country: None (occurrence: None)
  Receive Date: 20111121
  Receipt Date: 20111113
  Transmission Date: 20120403
  Serious: Yes (Other)
  Sender: FDA-Public Use
  Company Number: PHHY2011US099994

PATIENT
  Age: 57 Year
  Sex: Female

DRUGS (2)
  1. ZOLEDRONIC ACID [Suspect]
  2. LETROZOLE [Suspect]

REACTIONS (5)
  - LYMPHOID TISSUE HYPERPLASIA [None]
  - SKIN PLAQUE [None]
  - PRURITUS [None]
  - PAPULE [None]
  - PSEUDOLYMPHOMA [None]
